FAERS Safety Report 8118553-9 (Version None)
Quarter: 2012Q1

REPORT INFORMATION
  Report Type: 
  Country: None (occurrence: None)
  Receive Date: 20120202
  Receipt Date: 20120119
  Transmission Date: 20120608
  Serious: Yes (Death, Life-Threatening, Hospitalization, Other)
  Sender: FDA-Public Use
  Company Number: 2012MA000940

PATIENT
  Sex: Male

DRUGS (22)
  1. ALBUTEROL [Concomitant]
  2. LORTAB [Concomitant]
  3. PROPINE [Concomitant]
  4. ZOFRAN [Concomitant]
  5. POTASSIUM [Concomitant]
  6. COLACE [Suspect]
  7. ACETAMINOPHEN [Concomitant]
  8. REGITINE [Concomitant]
  9. PRAVACHOL [Concomitant]
  10. NYSTATIN [Concomitant]
  11. CATAPRES [Concomitant]
  12. TIMOPTIC [Concomitant]
  13. CHLORIDE [Concomitant]
  14. LOVENOX [Concomitant]
  15. AZOPT [Concomitant]
  16. LOPRESSOR [Concomitant]
  17. IPRATROPIUM BROMIDE [Concomitant]
  18. PANTROPRAZOLE [Concomitant]
  19. ASPIRIN [Concomitant]
  20. REGLAN [Concomitant]
  21. BENADRYL [Concomitant]
  22. DIGOXIN [Suspect]
     Indication: PRODUCT USED FOR UNKNOWN INDICATION
     Dosage: 125 MCG; QD; PO
     Route: 048
     Dates: start: 20050301, end: 20080601

REACTIONS (37)
  - PYLORIC STENOSIS [None]
  - MALNUTRITION [None]
  - MYOCARDIAL INFARCTION [None]
  - MULTIPLE INJURIES [None]
  - AGITATION [None]
  - GASTRITIS [None]
  - GASTROOESOPHAGEAL REFLUX DISEASE [None]
  - LEFT VENTRICULAR HYPERTROPHY [None]
  - CHRONIC OBSTRUCTIVE PULMONARY DISEASE [None]
  - SEPSIS [None]
  - CARDIAC DISORDER [None]
  - RESPIRATORY FAILURE [None]
  - COMMUNICATION DISORDER [None]
  - ACTIVITIES OF DAILY LIVING IMPAIRED [None]
  - AORTIC ARTERIOSCLEROSIS [None]
  - AORTIC VALVE INCOMPETENCE [None]
  - PAIN [None]
  - ANXIETY [None]
  - PULMONARY OEDEMA [None]
  - ANAEMIA [None]
  - URINARY TRACT INFECTION ENTEROCOCCAL [None]
  - AGONAL DEATH STRUGGLE [None]
  - BACK PAIN [None]
  - DYSPNOEA [None]
  - ACUTE MYOCARDIAL INFARCTION [None]
  - LUNG INFECTION PSEUDOMONAL [None]
  - ATRIAL FIBRILLATION [None]
  - HYPERCHOLESTEROLAEMIA [None]
  - COMPRESSION FRACTURE [None]
  - DYSPHAGIA [None]
  - RESPIRATORY DISTRESS [None]
  - CORONARY ARTERY DISEASE [None]
  - CARDIAC FAILURE CONGESTIVE [None]
  - ENCEPHALOPATHY [None]
  - MITRAL VALVE INCOMPETENCE [None]
  - DEHYDRATION [None]
  - RENAL FAILURE ACUTE [None]
